FAERS Safety Report 9835649 (Version 1)
Quarter: 2014Q1

REPORT INFORMATION
  Report Type: Report from Study
  Country: US (occurrence: US)
  Receive Date: 20140122
  Receipt Date: 20140122
  Transmission Date: 20141002
  Serious: Yes (Death)
  Sender: FDA-Public Use
  Company Number: US-PFIZER INC-2014018202

PATIENT
  Age: 49 Year
  Sex: Male

DRUGS (6)
  1. BENZONATATE [Suspect]
     Dosage: UNK
  2. LISINOPRIL [Suspect]
     Dosage: UNK
  3. AMLODIPINE BESILATE [Suspect]
     Dosage: UNK
  4. TRAZODONE [Suspect]
     Dosage: UNK
  5. COCAINE [Suspect]
     Dosage: UNK
  6. BENZTROPEINE [Suspect]
     Dosage: UNK

REACTIONS (1)
  - Toxicity to various agents [Fatal]
